FAERS Safety Report 18639170 (Version 2)
Quarter: 2021Q1

REPORT INFORMATION
  Report Type: Report from Study
  Country: None (occurrence: BR)
  Receive Date: 20201218
  Receipt Date: 20210111
  Transmission Date: 20210419
  Serious: No
  Sender: FDA-Public Use
  Company Number: BR-ABBVIE-18K-020-2573830-00

PATIENT
  Sex: Female

DRUGS (1)
  1. HUMIRA [Suspect]
     Active Substance: ADALIMUMAB
     Indication: ANKYLOSING SPONDYLITIS
     Route: 058
     Dates: start: 20180328, end: 201810

REACTIONS (2)
  - Sinusitis [Unknown]
  - Pharyngitis [Unknown]

NARRATIVE: CASE EVENT DATE: 2018
